FAERS Safety Report 7507054-4 (Version None)
Quarter: 2011Q2

REPORT INFORMATION
  Report Type: 
  Country: None (occurrence: None)
  Receive Date: 20110526
  Receipt Date: 20110516
  Transmission Date: 20111010
  Serious: Yes (Hospitalization)
  Sender: FDA-Public Use
  Company Number: US-BAXTER-2011BH000303

PATIENT
  Age: 56 Year
  Sex: Male
  Weight: 78 kg

DRUGS (1)
  1. DIANEAL [Suspect]
     Indication: PERITONEAL DIALYSIS
     Route: 033

REACTIONS (4)
  - VOMITING [None]
  - NAUSEA [None]
  - CONSTIPATION [None]
  - DIABETES MELLITUS INADEQUATE CONTROL [None]
